FAERS Safety Report 7988725-2 (Version None)
Quarter: 2011Q4

REPORT INFORMATION
  Report Type: 
  Country: None (occurrence: None)
  Receive Date: 20111219
  Receipt Date: 20111213
  Transmission Date: 20120403
  Serious: Yes (Hospitalization, Other)
  Sender: FDA-Public Use
  Company Number: FR-BRISTOL-MYERS SQUIBB COMPANY-15303589

PATIENT
  Age: 72 Year
  Sex: Male

DRUGS (1)
  1. BELATACEPT [Suspect]
     Indication: RENAL TRANSPLANT
     Route: 042
     Dates: start: 20070622

REACTIONS (3)
  - CHOLECYSTITIS ACUTE [None]
  - SQUAMOUS CELL CARCINOMA OF SKIN [None]
  - PANCREATITIS ACUTE [None]
